FAERS Safety Report 9315324 (Version 1)
Quarter: 2013Q2

REPORT INFORMATION
  Report Type: Spontaneous
  Country: US (occurrence: US)
  Receive Date: 20130529
  Receipt Date: 20130529
  Transmission Date: 20140414
  Serious: Yes (Hospitalization)
  Sender: FDA-Public Use
  Company Number: US-US-EMD SERONO, INC.-7212650

PATIENT
  Age: 52 Year
  Sex: Female

DRUGS (2)
  1. REBIF [Suspect]
     Indication: MULTIPLE SCLEROSIS
  2. COPAXONE /01410902/ [Suspect]
     Indication: MULTIPLE SCLEROSIS
     Dates: start: 20120325

REACTIONS (4)
  - Cellulitis [Recovering/Resolving]
  - Blister [Recovering/Resolving]
  - Local swelling [Not Recovered/Not Resolved]
  - Weight decreased [Unknown]
